FAERS Safety Report 11716804 (Version 1)
Quarter: 2015Q4

REPORT INFORMATION
  Report Type: Spontaneous
  Country: JP (occurrence: JP)
  Receive Date: 20151109
  Receipt Date: 20151109
  Transmission Date: 20160304
  Serious: Yes (Death)
  Sender: FDA-Public Use
  Company Number: JP-BAYER-2015-454593

PATIENT
  Age: 83 Year
  Sex: Female

DRUGS (2)
  1. BAYASPIRIN [Suspect]
     Active Substance: ASPIRIN
     Indication: CORONARY ARTERY BYPASS
     Route: 048
  2. HEPARIN [Interacting]
     Active Substance: HEPARIN SODIUM
     Indication: ANTICOAGULANT THERAPY

REACTIONS (6)
  - Pain in extremity [Fatal]
  - Labelled drug-drug interaction medication error [None]
  - Cardio-respiratory arrest [Fatal]
  - Retroperitoneal haematoma [Fatal]
  - Blood pressure decreased [Fatal]
  - Arterial haemorrhage [Fatal]
